FAERS Safety Report 4487511-8 (Version None)
Quarter: 2004Q3

REPORT INFORMATION
  Report Type: 
  Country: None (occurrence: None)
  Receive Date: 20040921
  Receipt Date: 20040415
  Transmission Date: 20050211
  Serious: Yes (Hospitalization)
  Sender: FDA-Public Use
  Company Number: 163-20785-04040419(0)

PATIENT
  Age: 65 Year
  Sex: Female
  Weight: 74.4 kg

DRUGS (6)
  1. THALOMID [Suspect]
     Indication: SARCOMA UTERUS
     Dosage: 150 - 200 MG, AT BEDTIME, ORAL
     Route: 048
     Dates: start: 20040212, end: 20040309
  2. THALOMID [Suspect]
     Indication: SARCOMA UTERUS
     Dosage: 150 - 200 MG, AT BEDTIME, ORAL
     Route: 048
     Dates: start: 20040310, end: 20040410
  3. DECADRON [Concomitant]
  4. FENTANYL [Concomitant]
  5. NAPROSYN [Concomitant]
  6. OXYCODONE (OXYCODONE) [Concomitant]

REACTIONS (4)
  - DIARRHOEA [None]
  - DYSPNOEA [None]
  - FATIGUE [None]
  - PAIN [None]
